FAERS Safety Report 4561765-1 (Version None)
Quarter: 2005Q1

REPORT INFORMATION
  Report Type: 
  Country: None (occurrence: None)
  Receive Date: 20050125
  Receipt Date: 20050114
  Transmission Date: 20050727
  Serious: Yes (Hospitalization)
  Sender: FDA-Public Use
  Company Number: 2004114354

PATIENT
  Age: 53 Year
  Sex: Male
  Weight: 87.5442 kg

DRUGS (4)
  1. DEPO-TESTOSTERONE [Suspect]
     Indication: BLOOD TESTOSTERONE DECREASED
     Dosage: INTRAMUSCULAR
     Route: 030
  2. FLUOXETINE HYDROCHLORIDE [Concomitant]
  3. LISINOPRIL [Concomitant]
  4. MUSCLE RELAXANTS (MUSCLE RELAXANTS) [Concomitant]

REACTIONS (4)
  - DRUG EFFECT DECREASED [None]
  - NASOPHARYNGITIS [None]
  - PHARMACEUTICAL PRODUCT COMPLAINT [None]
  - SURGERY [None]
